FAERS Safety Report 5777432-2 (Version None)
Quarter: 2008Q2

REPORT INFORMATION
  Report Type: 
  Country: None (occurrence: None)
  Receive Date: 20080616
  Receipt Date: 20080529
  Transmission Date: 20081010
  Serious: Yes (Life-Threatening)
  Sender: FDA-Public Use
  Company Number: 1-16207521

PATIENT
  Sex: Male
  Weight: 81.6475 kg

DRUGS (5)
  1. BACITRACIN [Suspect]
     Indication: WOUND INFECTION
     Dosage: APPLIED TWICE TO WOUND, CUTANEOUS
     Route: 003
     Dates: start: 20080501, end: 20080501
  2. PROZAC (FLOUXETINE HYDROCHLORIDE) [Concomitant]
  3. XANAX [Concomitant]
  4. ALBUTEROL [Concomitant]
  5. ANCEF (CEPHAZOLIN) [Concomitant]

REACTIONS (3)
  - ANAPHYLACTIC SHOCK [None]
  - FEELING ABNORMAL [None]
  - REFUSAL OF TREATMENT BY PATIENT [None]
